FAERS Safety Report 10390331 (Version 1)
Quarter: 2014Q3

REPORT INFORMATION
  Report Type: Report from Study
  Country: US (occurrence: None)
  Receive Date: 20140814
  Receipt Date: 20140814
  Transmission Date: 20150326
  Serious: Yes (Hospitalization)
  Sender: FDA-Public Use
  Company Number: VAL_03324_2014

PATIENT
  Age: 8 Month
  Sex: Male

DRUGS (22)
  1. CALCITRIOL. [Suspect]
     Active Substance: CALCITRIOL
     Indication: PRODUCT USED FOR UNKNOWN INDICATION
     Route: 048
  2. KAYEXALATE [Concomitant]
     Active Substance: SODIUM POLYSTYRENE SULFONATE
  3. ALBUTEROL. [Concomitant]
     Active Substance: ALBUTEROL
  4. METOCLOPRAMIDE. [Concomitant]
     Active Substance: METOCLOPRAMIDE
  5. LEVOTHYROXINE [Concomitant]
     Active Substance: LEVOTHYROXINE
  6. GENTAMYCIN [Concomitant]
     Active Substance: GENTAMICIN
  7. PREVACID [Concomitant]
     Active Substance: LANSOPRAZOLE
  8. FERROUS SULFATE [Concomitant]
     Active Substance: FERROUS SULFATE\FERROUS SULFATE, DRIED
  9. QVAR [Concomitant]
     Active Substance: BECLOMETHASONE DIPROPIONATE
  10. SODIUM CHLORIDE. [Concomitant]
     Active Substance: SODIUM CHLORIDE
  11. REGLAN [Concomitant]
     Active Substance: METOCLOPRAMIDE HYDROCHLORIDE
  12. CEFAZOLIN [Concomitant]
     Active Substance: CEFAZOLIN
  13. FORTAZ [Concomitant]
     Active Substance: CEFTAZIDIME SODIUM
  14. SYNTHROID [Concomitant]
     Active Substance: LEVOTHYROXINE SODIUM
  15. DOPAMINE [Concomitant]
     Active Substance: DOPAMINE\DOPAMINE HYDROCHLORIDE
  16. NYSTATIN. [Concomitant]
     Active Substance: NYSTATIN
  17. FERROUS [Concomitant]
     Active Substance: FERROUS SULFATE\GLYCINE
  18. CALCIUM CARBONATE. [Concomitant]
     Active Substance: CALCIUM CARBONATE
  19. ZANTAC [Concomitant]
     Active Substance: RANITIDINE HYDROCHLORIDE
  20. AMPHOTERICIN [Concomitant]
     Active Substance: AMPHOTERICIN B
  21. EPOETIN ALFA [Concomitant]
     Active Substance: ERYTHROPOIETIN
  22. FLAGYL [Concomitant]
     Active Substance: METRONIDAZOLE\METRONIDAZOLE HYDROCHLORIDE

REACTIONS (14)
  - Blood potassium increased [None]
  - Blood creatinine increased [None]
  - Abdominal distension [None]
  - Blood sodium decreased [None]
  - Blood alkaline phosphatase increased [None]
  - Rhinorrhoea [None]
  - Blood albumin decreased [None]
  - Alanine aminotransferase decreased [None]
  - Pyrexia [None]
  - Fluid overload [None]
  - Protein total decreased [None]
  - Nasal congestion [None]
  - Blood urea increased [None]
  - Blood parathyroid hormone increased [None]

NARRATIVE: CASE EVENT DATE: 20120129
